FAERS Safety Report 8139079-2 (Version None)
Quarter: 2012Q1

REPORT INFORMATION
  Report Type: 
  Country: None (occurrence: None)
  Receive Date: 20120215
  Receipt Date: 20120209
  Transmission Date: 20120608
  Serious: Yes (Hospitalization)
  Sender: FDA-Public Use
  Company Number: IT-ABBOTT-12P-083-0903200-00

PATIENT
  Sex: Male

DRUGS (4)
  1. HYTRIN [Suspect]
     Indication: PRODUCT USED FOR UNKNOWN INDICATION
     Dosage: DAILY
     Route: 048
     Dates: start: 20110424, end: 20110524
  2. RAMIPRIL [Suspect]
     Indication: HYPERTENSION
     Dosage: 1 DAILY, 5 MG+25MG
     Dates: start: 20110424, end: 20110524
  3. CLARITHROMYCIN [Concomitant]
     Indication: PRODUCT USED FOR UNKNOWN INDICATION
  4. TEGRETOL [Suspect]
     Indication: PRODUCT USED FOR UNKNOWN INDICATION
     Dates: start: 20110424, end: 20110524

REACTIONS (2)
  - HYPONATRAEMIA [None]
  - SOPOR [None]
